FAERS Safety Report 6983429-7 (Version None)
Quarter: 2010Q3

REPORT INFORMATION
  Report Type: 
  Country: None (occurrence: None)
  Receive Date: 20100913
  Receipt Date: 20100913
  Transmission Date: 20110219
  Serious: No
  Sender: FDA-Public Use
  Company Number: None

PATIENT
  Age: 78 Year
  Sex: Female

DRUGS (1)
  1. OMEPRAZOLE [Suspect]
     Dosage: TAKE 1 CAPSULE DAILY BEFORE A MEAL

REACTIONS (4)
  - ABDOMINAL PAIN UPPER [None]
  - DRUG INEFFECTIVE [None]
  - HEADACHE [None]
  - PRODUCT SUBSTITUTION ISSUE [None]
